FAERS Safety Report 25365523 (Version 2)
Quarter: 2025Q4

REPORT INFORMATION
  Report Type: Spontaneous
  Country: JP (occurrence: JP)
  Receive Date: 20250527
  Receipt Date: 20251016
  Transmission Date: 20260117
  Serious: Yes (Hospitalization, Other)
  Sender: TAKEDA
  Company Number: JP-TAKEDA-2025TUS049525

PATIENT
  Age: 22 Year
  Sex: Male

DRUGS (1)
  1. LIALDA [Suspect]
     Active Substance: MESALAMINE
     Indication: Colitis ulcerative
     Dosage: 4800 MILLIGRAM, QD
     Dates: start: 20250501, end: 20250507

REACTIONS (6)
  - Cardiomyopathy [Recovered/Resolved]
  - Chest pain [Unknown]
  - Cardiac tamponade [Unknown]
  - Pyrexia [Unknown]
  - Arthralgia [Unknown]
  - Pericarditis [Unknown]

NARRATIVE: CASE EVENT DATE: 20250501
